FAERS Safety Report 16205659 (Version 3)
Quarter: 2019Q3

REPORT INFORMATION
  Report Type: Spontaneous
  Country: PT (occurrence: PT)
  Receive Date: 20190417
  Receipt Date: 20190723
  Transmission Date: 20191004
  Serious: Yes (Other)
  Sender: FDA-Public Use
  Company Number: PT-ROCHE-2301823

PATIENT
  Age: 74 Year
  Sex: Female

DRUGS (5)
  1. ROSILAN [Concomitant]
     Active Substance: DEFLAZACORT
     Indication: PRODUCT USED FOR UNKNOWN INDICATION
     Route: 065
  2. XOLAIR [Suspect]
     Active Substance: OMALIZUMAB
     Route: 065
  3. RELVAR [Concomitant]
     Active Substance: FLUTICASONE FUROATE\VILANTEROL TRIFENATATE
     Indication: PRODUCT USED FOR UNKNOWN INDICATION
     Dosage: UNK
     Route: 065
  4. SYMBICORT [Concomitant]
     Active Substance: BUDESONIDE\FORMOTEROL FUMARATE DIHYDRATE
     Indication: PRODUCT USED FOR UNKNOWN INDICATION
     Route: 065
  5. XOLAIR [Suspect]
     Active Substance: OMALIZUMAB
     Indication: BRONCHIECTASIS
     Route: 065

REACTIONS (20)
  - Paraesthesia [Recovered/Resolved]
  - Product use in unapproved indication [Unknown]
  - Feeling abnormal [Unknown]
  - Weight increased [Unknown]
  - Madarosis [Not Recovered/Not Resolved]
  - Corneal deposits [Recovered/Resolved]
  - Hemiplegia [Recovered/Resolved]
  - Cough [Recovering/Resolving]
  - Pigmentation disorder [Recovered/Resolved]
  - Pain in extremity [Unknown]
  - Dizziness [Unknown]
  - Diarrhoea [Unknown]
  - Visual impairment [Recovered/Resolved]
  - Drug hypersensitivity [Unknown]
  - Dyspnoea [Recovered/Resolved]
  - Nail injury [Unknown]
  - Onychomadesis [Recovering/Resolving]
  - Off label use [Unknown]
  - Pneumonia [Not Recovered/Not Resolved]
  - Administration site mass [Not Recovered/Not Resolved]
